FAERS Safety Report 8131657-X (Version None)
Quarter: 2012Q1

REPORT INFORMATION
  Report Type: 
  Country: None (occurrence: None)
  Receive Date: 20120208
  Receipt Date: 20120203
  Transmission Date: 20120608
  Serious: Yes (Hospitalization, Other)
  Sender: FDA-Public Use
  Company Number: 2011SP030606

PATIENT
  Age: 25 Year
  Sex: Female
  Weight: 81.6475 kg

DRUGS (4)
  1. MARIJUANA [Concomitant]
  2. NUVARING [Suspect]
     Indication: CONTRACEPTION
     Dates: start: 20060101, end: 20080801
  3. NUVARING [Suspect]
     Indication: CONTRACEPTION
     Dates: start: 20090101, end: 20090701
  4. ALBUTEROL [Concomitant]

REACTIONS (14)
  - PHOTOPHOBIA [None]
  - COGNITIVE DISORDER [None]
  - CAVERNOUS SINUS THROMBOSIS [None]
  - VOMITING [None]
  - TRANSVERSE SINUS THROMBOSIS [None]
  - VAGINITIS CHLAMYDIAL [None]
  - MENTAL DISORDER [None]
  - VERTIGO [None]
  - EMOTIONAL DISORDER [None]
  - SUPERIOR SAGITTAL SINUS THROMBOSIS [None]
  - CEREBRAL THROMBOSIS [None]
  - PROTEIN S DEFICIENCY [None]
  - DEEP VEIN THROMBOSIS [None]
  - ALCOHOL USE [None]
